FAERS Safety Report 6973429-5 (Version None)
Quarter: 2010Q3

REPORT INFORMATION
  Report Type: 
  Country: None (occurrence: None)
  Receive Date: 20100909
  Receipt Date: 20100831
  Transmission Date: 20110219
  Serious: Yes (Other)
  Sender: FDA-Public Use
  Company Number: US-PFIZER INC-2010097597

PATIENT
  Sex: Female
  Weight: 49.887 kg

DRUGS (3)
  1. LIPITOR [Suspect]
     Indication: BLOOD CHOLESTEROL INCREASED
     Dosage: 10 MG, UNK
  2. LIPITOR [Suspect]
     Indication: ARTERIAL OCCLUSIVE DISEASE
     Dosage: 10 MG, DAILY
     Route: 048
     Dates: start: 19990101
  3. CALCIUM [Concomitant]
     Dosage: UNK

REACTIONS (7)
  - BACK DISORDER [None]
  - BLOOD CHOLESTEROL INCREASED [None]
  - CEREBRAL HAEMATOMA [None]
  - CONVULSION [None]
  - DYSGEUSIA [None]
  - INSOMNIA [None]
  - WEIGHT DECREASED [None]
